FAERS Safety Report 10288290 (Version 1)
Quarter: 2014Q3

REPORT INFORMATION
  Report Type: Spontaneous
  Country: IT (occurrence: IT)
  Receive Date: 20140709
  Receipt Date: 20140709
  Transmission Date: 20150326
  Serious: Yes (Other)
  Sender: FDA-Public Use
  Company Number: IT-PFIZER INC-2014188885

PATIENT
  Age: 78 Year
  Sex: Male

DRUGS (5)
  1. FELDENE FAST [Suspect]
     Active Substance: PIROXICAM
     Indication: BACK PAIN
     Dosage: UNK
     Route: 048
     Dates: start: 20140625, end: 20140630
  2. METFORMIN [Concomitant]
     Active Substance: METFORMIN HYDROCHLORIDE
  3. LASIX [Concomitant]
     Active Substance: FUROSEMIDE
  4. CARDIRENE [Concomitant]
     Active Substance: ASPIRIN DL-LYSINE
  5. OMEPRAZOLE. [Concomitant]
     Active Substance: OMEPRAZOLE

REACTIONS (4)
  - Shock [Recovered/Resolved]
  - Syncope [Recovered/Resolved]
  - Local swelling [Unknown]
  - Dyskinesia [Recovered/Resolved]

NARRATIVE: CASE EVENT DATE: 201406
